FAERS Safety Report 9716698 (Version 1)
Quarter: 2013Q4

REPORT INFORMATION
  Report Type: Spontaneous
  Country: US (occurrence: US)
  Receive Date: 20131127
  Receipt Date: 20131127
  Transmission Date: 20140711
  Serious: No
  Sender: FDA-Public Use
  Company Number: US-ENDO PHARMACEUTICALS INC.-HYDR20120003

PATIENT
  Sex: Male

DRUGS (2)
  1. HYDROCORTISONE TABLETS 5MG [Suspect]
     Indication: ASTHMA
     Route: 048
     Dates: start: 201202
  2. HYDROCORTISONE TABLETS 5MG [Suspect]
     Route: 048
     Dates: start: 201202

REACTIONS (1)
  - Abdominal discomfort [Unknown]
